FAERS Safety Report 4480380-1 (Version None)
Quarter: 2004Q4

REPORT INFORMATION
  Report Type: 
  Country: None (occurrence: None)
  Receive Date: 20041018
  Receipt Date: 20040930
  Transmission Date: 20050328
  Serious: Yes (Other)
  Sender: FDA-Public Use
  Company Number: 2004IC000544

PATIENT
  Age: 68 Year
  Sex: Male

DRUGS (20)
  1. FLUOROURACIL [Suspect]
     Indication: COLORECTAL CANCER METASTATIC
     Dosage: SEE IMAGE
     Route: 040
     Dates: end: 20000302
  2. FLUOROURACIL [Suspect]
     Indication: COLORECTAL CANCER METASTATIC
     Dosage: SEE IMAGE
     Route: 040
     Dates: start: 20000114
  3. OXALIPLATIN (OXALIPLATIN) [Suspect]
     Indication: COLORECTAL CANCER METASTATIC
     Dosage: 85 MG/M**2; INTRAVENOUS
     Route: 042
  4. LEUCOVORIN CALCIUM [Suspect]
     Indication: COLORECTAL CANCER METASTATIC
     Dosage: 150 MG/M**2; INTRAVENOUS
     Route: 042
  5. CEFAZOLIN [Concomitant]
  6. VALIUM [Concomitant]
  7. NORVASC [Concomitant]
  8. SENOKOT [Concomitant]
  9. ARTANE [Concomitant]
  10. GENTAMYCIN SULFATE [Concomitant]
  11. MAGNESIUM OXIDE [Concomitant]
  12. TRAMADOL HCL [Concomitant]
  13. METOCLOPRAMIDE [Concomitant]
  14. PARACETAMOL [Concomitant]
  15. UROKINASE [Concomitant]
  16. ALLERMIN [Concomitant]
  17. TRAMAL [Concomitant]
  18. MV [Concomitant]
  19. WINTERMIN [Concomitant]
  20. ERISPAN [Concomitant]

REACTIONS (1)
  - NEUROTOXICITY [None]
